FAERS Safety Report 24843089 (Version 2)
Quarter: 2025Q1

REPORT INFORMATION
  Report Type: Report from Study
  Country: US (occurrence: US)
  Receive Date: 20250115
  Receipt Date: 20250115
  Transmission Date: 20250409
  Serious: No
  Sender: HRA PHARMA
  Company Number: US-ORG100014127-2024000329

PATIENT
  Age: 74 Year
  Sex: Female

DRUGS (22)
  1. LYSODREN [Suspect]
     Active Substance: MITOTANE
     Indication: Product used for unknown indication
     Dosage: 2 TABLETS BY MOUTH TWICE DAILY FOR WEEK 1
     Route: 048
     Dates: start: 20240629
  2. LYSODREN [Suspect]
     Active Substance: MITOTANE
     Indication: Product used for unknown indication
     Dosage: 3 TABLETS BY MOUTH TWICE DAILY FOR WEEK 2
     Route: 048
  3. LYSODREN [Suspect]
     Active Substance: MITOTANE
     Indication: Product used for unknown indication
     Dosage: 4 TABLETS BY MOUTH TWICE?DAILY FOR WEEK 3
     Route: 048
  4. LYSODREN [Suspect]
     Active Substance: MITOTANE
     Indication: Product used for unknown indication
     Dosage: 5 TABLETS TWICE DAILY
     Route: 048
     Dates: start: 202407, end: 2024
  5. ACETAMIN TAB 500MG [Concomitant]
     Indication: Product used for unknown indication
  6. ALPRAZOLAM TAB 0.25MG [Concomitant]
     Indication: Product used for unknown indication
  7. ASPIRIN TAB 81MG EC [Concomitant]
     Indication: Product used for unknown indication
  8. CHLORTHALID TAB 50MG [Concomitant]
     Indication: Product used for unknown indication
  9. CYCLOBENZAPR TAB 5MG [Concomitant]
     Indication: Product used for unknown indication
  10. ELIQUIS [Concomitant]
     Active Substance: APIXABAN
     Indication: Product used for unknown indication
  11. EZETIMIBE [Concomitant]
     Active Substance: EZETIMIBE
     Indication: Product used for unknown indication
  12. HYDRALAZINE [Concomitant]
     Active Substance: HYDRALAZINE HYDROCHLORIDE
     Indication: Product used for unknown indication
  13. HYDROCORT POW [Concomitant]
     Indication: Product used for unknown indication
  14. LIDO/PRILOCN CRE 2.5-2.5% [Concomitant]
     Indication: Product used for unknown indication
  15. MELATONIN TAB 1MG [Concomitant]
     Indication: Product used for unknown indication
  16. METFORMN OSM TAB 500MG ER [Concomitant]
     Indication: Product used for unknown indication
  17. METOPROLOL SUCCINATE [Concomitant]
     Active Substance: METOPROLOL SUCCINATE
     Indication: Product used for unknown indication
  18. METOPROL TAR TAB 25MG [Concomitant]
     Indication: Product used for unknown indication
  19. OLANZAPINE TAB 5MG [Concomitant]
     Indication: Product used for unknown indication
  20. ONDANSETRON [Concomitant]
     Active Substance: ONDANSETRON
     Indication: Product used for unknown indication
  21. OXYCODONE CAP 5MG [Concomitant]
     Indication: Product used for unknown indication
  22. TRAMADOL HCL TAB 50MG [Concomitant]
     Indication: Product used for unknown indication

REACTIONS (1)
  - Drug intolerance [Unknown]

NARRATIVE: CASE EVENT DATE: 20240101
